FAERS Safety Report 10019977 (Version 2)
Quarter: 2014Q1

REPORT INFORMATION
  Report Type: Spontaneous
  Country: FR (occurrence: FR)
  Receive Date: 20140318
  Receipt Date: 20140325
  Transmission Date: 20141002
  Serious: Yes (Death)
  Sender: FDA-Public Use
  Company Number: FR-B.I. PHARMACEUTICALS,INC./RIDGEFIELD-2014-BI-11439FF

PATIENT
  Age: 63 Year
  Sex: Male

DRUGS (3)
  1. PRADAXA [Suspect]
     Indication: ATRIAL FIBRILLATION
     Dosage: 300 MG
     Route: 048
     Dates: start: 20131016
  2. STATIN(HMG-COA REDUCTASE) [Concomitant]
     Route: 065
  3. ISOPTINE [Concomitant]
     Route: 065

REACTIONS (2)
  - Gastrointestinal haemorrhage [Fatal]
  - Gastroenteritis [Unknown]
